FAERS Safety Report 6765482-9 (Version None)
Quarter: 2010Q2

REPORT INFORMATION
  Report Type: 
  Country: None (occurrence: None)
  Receive Date: 20100611
  Receipt Date: 20100601
  Transmission Date: 20101027
  Serious: Yes (Other)
  Sender: FDA-Public Use
  Company Number: PHHY2009CA11377

PATIENT
  Sex: Male

DRUGS (3)
  1. EXJADE [Suspect]
     Indication: PYRUVATE KINASE DECREASED
     Dosage: 250 MG
     Route: 048
     Dates: start: 20081117
  2. EXJADE [Suspect]
     Dosage: 1/4 OF 250 MG
     Route: 048
     Dates: start: 20090324
  3. BLOOD TRANSFUSION, AUXILIARY PRODUCTS [Concomitant]

REACTIONS (6)
  - ABDOMINAL PAIN [None]
  - ALANINE AMINOTRANSFERASE INCREASED [None]
  - ASPARTATE AMINOTRANSFERASE INCREASED [None]
  - HEPATIC ENZYME INCREASED [None]
  - LIVER DISORDER [None]
  - TONSILLAR HYPERTROPHY [None]
